FAERS Safety Report 21016725 (Version 3)
Quarter: 2023Q2

REPORT INFORMATION
  Report Type: Report from Study
  Country: US (occurrence: US)
  Receive Date: 20220628
  Receipt Date: 20230524
  Transmission Date: 20230722
  Serious: No
  Sender: FDA-Public Use
  Company Number: US-NOVARTISTESTPH-NVSC2022US147509

PATIENT
  Sex: Female

DRUGS (2)
  1. ILARIS [Suspect]
     Active Substance: CANAKINUMAB
     Indication: Pyrexia
     Dosage: 120 MG EVERY 4 WEEKS
     Route: 058
     Dates: start: 20220209
  2. ILARIS [Suspect]
     Active Substance: CANAKINUMAB
     Dosage: 130 MG, OTHER (EVERY 4 WEEKS)
     Route: 058
     Dates: start: 20220322

REACTIONS (1)
  - COVID-19 [Unknown]
